FAERS Safety Report 8360350-3 (Version None)
Quarter: 2012Q2

REPORT INFORMATION
  Report Type: 
  Country: None (occurrence: None)
  Receive Date: 20120515
  Receipt Date: 20120507
  Transmission Date: 20120825
  Serious: Yes (Other)
  Sender: FDA-Public Use
  Company Number: US-JNJFOC-20120508032

PATIENT
  Sex: Female
  Weight: 127.92 kg

DRUGS (7)
  1. TYLENOL W/ CODEINE NO. 3 [Suspect]
     Indication: BACK PAIN
     Route: 065
     Dates: start: 20000101
  2. DARVOCET [Concomitant]
     Dates: end: 20100101
  3. UNKNOWN MEDICATION [Concomitant]
     Indication: MIGRAINE
  4. LEVOTHYROXINE SODIUM [Concomitant]
     Indication: THYROID DISORDER
     Dosage: SINCE 2-3 YEARS AGO
  5. BENTYL [Concomitant]
     Indication: ABDOMINAL PAIN UPPER
     Dosage: 3 YEARS AGO
  6. ALPRAZOLAM [Concomitant]
     Indication: ANXIETY
  7. BENTYL [Concomitant]
     Indication: GASTROINTESTINAL PAIN
     Dosage: 3 YEARS AGO

REACTIONS (3)
  - HYPERTENSION [None]
  - BLOOD POTASSIUM DECREASED [None]
  - HEART RATE IRREGULAR [None]
